FAERS Safety Report 15427571 (Version 2)
Quarter: 2018Q4

REPORT INFORMATION
  Report Type: Report from Study
  Country: US (occurrence: US)
  Receive Date: 20180925
  Receipt Date: 20181012
  Transmission Date: 20190204
  Serious: Yes (Life-Threatening, Other)
  Sender: FDA-Public Use
  Company Number: US-GILEAD-2018-0358245

PATIENT
  Sex: Male
  Weight: 69.2 kg

DRUGS (54)
  1. BACTRIM DS [Concomitant]
     Active Substance: SULFAMETHOXAZOLE\TRIMETHOPRIM
  2. NALOXEGOL [Concomitant]
     Active Substance: NALOXEGOL
  3. VANCOMYCIN [Concomitant]
     Active Substance: VANCOMYCIN
  4. FILGRASTIM [Concomitant]
     Active Substance: FILGRASTIM
  5. DIPHENHYDRAMINE. [Concomitant]
     Active Substance: DIPHENHYDRAMINE
  6. RITALIN [Concomitant]
     Active Substance: METHYLPHENIDATE HYDROCHLORIDE
  7. FLUDARABINE [Suspect]
     Active Substance: FLUDARABINE PHOSPHATE
     Indication: BONE MARROW CONDITIONING REGIMEN
     Dosage: 30 MG/M2, QD
     Route: 042
     Dates: start: 20180808, end: 20180810
  8. DOCUSATE W/SENNOSIDE A+B [Concomitant]
  9. MIRALAX [Concomitant]
     Active Substance: POLYETHYLENE GLYCOL 3350
  10. ETOMIDATE. [Concomitant]
     Active Substance: ETOMIDATE
  11. CEFEPIME [Concomitant]
     Active Substance: CEFEPIME HYDROCHLORIDE
  12. LEVOFLOXACIN. [Concomitant]
     Active Substance: LEVOFLOXACIN
  13. COLACE [Concomitant]
     Active Substance: DOCUSATE SODIUM
  14. AXICABTAGENE CILOLEUCEL [Suspect]
     Active Substance: AXICABTAGENE CILOLEUCEL
     Indication: DIFFUSE LARGE B-CELL LYMPHOMA REFRACTORY
     Dosage: 68 ML, ONCE
     Route: 042
     Dates: start: 20180813, end: 20180813
  15. DEXMEDETOMIDINE. [Concomitant]
     Active Substance: DEXMEDETOMIDINE
  16. POTASSIUM PHOSPHATE                /00493501/ [Concomitant]
     Active Substance: POTASSIUM PHOSPHATE, DIBASIC
  17. PLATELETS [Concomitant]
     Active Substance: HUMAN PLATELET, ALLOGENIC
  18. ACETAMINOPHEN. [Concomitant]
     Active Substance: ACETAMINOPHEN
  19. MAGNESIUM SULFATE. [Concomitant]
     Active Substance: MAGNESIUM SULFATE
  20. FLUCONAZOLE. [Concomitant]
     Active Substance: FLUCONAZOLE
  21. ALLOPURINOL. [Concomitant]
     Active Substance: ALLOPURINOL
  22. KEPPRA [Concomitant]
     Active Substance: LEVETIRACETAM
     Dosage: 1000 MG, BID
  23. SODIUM BICARBONATE. [Concomitant]
     Active Substance: SODIUM BICARBONATE
  24. PLASMALYTE [Concomitant]
     Active Substance: ELECTROLYTES NOS
  25. CALCIUM GLUCONATE. [Concomitant]
     Active Substance: CALCIUM GLUCONATE
  26. LEVETIRACETAM. [Concomitant]
     Active Substance: LEVETIRACETAM
  27. FAMOTIDINE. [Concomitant]
     Active Substance: FAMOTIDINE
  28. ACYCLOVIR                          /00587301/ [Concomitant]
     Active Substance: ACYCLOVIR
  29. OXYGEN. [Concomitant]
     Active Substance: OXYGEN
  30. METHYLPREDNISOLONE. [Concomitant]
     Active Substance: METHYLPREDNISOLONE
  31. CHLORHEXIDINE [Concomitant]
     Active Substance: CHLORHEXIDINE
  32. DEXAMETHASONE. [Concomitant]
     Active Substance: DEXAMETHASONE
     Dosage: 10 MG, QID
     Route: 042
     Dates: start: 20180821
  33. URSODIOL. [Concomitant]
     Active Substance: URSODIOL
  34. MIRTAZAPINE. [Concomitant]
     Active Substance: MIRTAZAPINE
  35. CYCLOPHOSPHAMIDE. [Suspect]
     Active Substance: CYCLOPHOSPHAMIDE
     Indication: BONE MARROW CONDITIONING REGIMEN
     Dosage: 500 MG/M2, QD
     Route: 042
     Dates: start: 20180808, end: 20180810
  36. PROPOFOL. [Concomitant]
     Active Substance: PROPOFOL
  37. MICAFUNGIN. [Concomitant]
     Active Substance: MICAFUNGIN SODIUM
  38. PROTONIX                           /00661201/ [Concomitant]
     Active Substance: OMEPRAZOLE
  39. MEROPENEM. [Concomitant]
     Active Substance: MEROPENEM
  40. PROCHLORPERAZINE. [Concomitant]
     Active Substance: PROCHLORPERAZINE
  41. ENOXAPARIN [Concomitant]
     Active Substance: ENOXAPARIN
  42. POTASSIUM CHLORIDE. [Concomitant]
     Active Substance: POTASSIUM CHLORIDE
  43. SODIUM PHOSPHATE [Concomitant]
     Active Substance: SODIUM PHOSPHATE
  44. SIMETHICONE (DIMETHICONE) [Concomitant]
     Active Substance: DIMETHICONE
  45. POSACONAZOLE [Concomitant]
     Active Substance: POSACONAZOLE
  46. ONDANSETRON [Concomitant]
     Active Substance: ONDANSETRON
  47. SODIUM CHLORIDE. [Concomitant]
     Active Substance: SODIUM CHLORIDE
  48. FENTANYL. [Concomitant]
     Active Substance: FENTANYL
  49. METHYLPHENIDATE. [Concomitant]
     Active Substance: METHYLPHENIDATE
  50. RED BLOOD CELLS [Concomitant]
     Active Substance: HUMAN RED BLOOD CELL
  51. AMBIEN [Concomitant]
     Active Substance: ZOLPIDEM TARTRATE
  52. PANTOPRAZOLE [Concomitant]
     Active Substance: PANTOPRAZOLE
  53. MULTIVITAMIN                       /00097801/ [Concomitant]
     Active Substance: VITAMINS
  54. CEFTRIAXONE. [Concomitant]
     Active Substance: CEFTRIAXONE

REACTIONS (6)
  - Hypotension [Recovered/Resolved]
  - Pyrexia [Recovered/Resolved]
  - Encephalopathy [Recovered/Resolved]
  - Hypoxia [Recovered/Resolved]
  - Cytokine release syndrome [Recovered/Resolved]
  - Pyrexia [Recovered/Resolved]

NARRATIVE: CASE EVENT DATE: 20180816
